FAERS Safety Report 19203750 (Version 1)
Quarter: 2021Q2

REPORT INFORMATION
  Report Type: Spontaneous
  Country: US (occurrence: US)
  Receive Date: 20210430
  Receipt Date: 20210430
  Transmission Date: 20210717
  Serious: Yes (Death, Other)
  Sender: FDA-Public Use
  Company Number: US-INCYTE CORPORATION-2021IN003897

PATIENT

DRUGS (3)
  1. JAKAFI [Suspect]
     Active Substance: RUXOLITINIB
     Indication: MYELODYSPLASTIC SYNDROME
  2. JAKAFI [Suspect]
     Active Substance: RUXOLITINIB
     Indication: NEPHROGENIC ANAEMIA
  3. JAKAFI [Suspect]
     Active Substance: RUXOLITINIB
     Indication: AGRANULOCYTOSIS
     Dosage: 5MG TWICE DAILY
     Route: 048
     Dates: start: 20200605

REACTIONS (2)
  - Death [Fatal]
  - Off label use [Unknown]

NARRATIVE: CASE EVENT DATE: 20200605
